FAERS Safety Report 5429533-6 (Version None)
Quarter: 2007Q3

REPORT INFORMATION
  Report Type: 
  Country: None (occurrence: None)
  Receive Date: 20070829
  Receipt Date: 20070411
  Transmission Date: 20080115
  Serious: No
  Sender: FDA-Public Use
  Company Number: A0636695A

PATIENT
  Age: 78 Year
  Sex: Female

DRUGS (1)
  1. BECONASE [Suspect]
     Dosage: 2PUFF VARIABLE DOSE
     Route: 045

REACTIONS (4)
  - APHONIA [None]
  - COUGH [None]
  - DRUG INEFFECTIVE [None]
  - PHARMACEUTICAL PRODUCT COMPLAINT [None]
